FAERS Safety Report 8456019-7 (Version None)
Quarter: 2012Q2

REPORT INFORMATION
  Report Type: 
  Country: None (occurrence: None)
  Receive Date: 20120621
  Receipt Date: 20120615
  Transmission Date: 20120825
  Serious: Yes (Other)
  Sender: FDA-Public Use
  Company Number: PHHY2012JP052200

PATIENT
  Sex: Male

DRUGS (5)
  1. GASMOTIN [Concomitant]
  2. TASIGNA [Suspect]
     Indication: CHRONIC MYELOID LEUKAEMIA
     Dosage: 400 MG, DAILY
     Route: 048
     Dates: start: 20100709, end: 20110218
  3. TASIGNA [Suspect]
     Dosage: 200 MG, DAILY
     Route: 048
  4. LANSOPRAZOLE [Concomitant]
     Dates: start: 20100910
  5. MUCOSTA [Concomitant]

REACTIONS (3)
  - PLATELET COUNT DECREASED [None]
  - ANAEMIA [None]
  - DRUG INEFFECTIVE [None]
